FAERS Safety Report 9850929 (Version 1)
Quarter: 2014Q1

REPORT INFORMATION
  Report Type: Spontaneous
  Country: GB (occurrence: None)
  Receive Date: 20140124
  Receipt Date: 20140124
  Transmission Date: 20141002
  Serious: Yes (Life-Threatening)
  Sender: FDA-Public Use
  Company Number: 2130994

PATIENT
  Age: 66 Year
  Sex: Male
  Weight: 70.7 kg

DRUGS (9)
  1. GENTAMICIN SULFATE [Suspect]
     Indication: PROPHYLAXIS
     Route: 042
     Dates: start: 20130522, end: 20130522
  2. CHLORHEXIDINE [Suspect]
     Indication: CYSTOSCOPY
     Dosage: APLIED TO TIP OF PENIS
     Dates: start: 20130522, end: 20130522
  3. ALLOPURINOL [Concomitant]
  4. AMLODIPINE [Concomitant]
  5. ASPIRIN [Concomitant]
  6. TAMSULOSIN [Concomitant]
  7. FENOFIBRATE [Concomitant]
  8. BENDROFLUMETHIAZIDE [Concomitant]
  9. RAMIPRIL [Concomitant]

REACTIONS (4)
  - Hypersensitivity [None]
  - Hypotension [None]
  - Tachycardia [None]
  - Swelling [None]
